FAERS Safety Report 4877818-4 (Version None)
Quarter: 2006Q1

REPORT INFORMATION
  Report Type: 
  Country: None (occurrence: None)
  Receive Date: 20060109
  Receipt Date: 20051223
  Transmission Date: 20060701
  Serious: Yes (Other)
  Sender: FDA-Public Use
  Company Number: AZAUS200500328

PATIENT
  Age: 76 Year
  Sex: Male
  Weight: 90.7194 kg

DRUGS (5)
  1. VIDAZA [Suspect]
     Indication: MYELODYSPLASTIC SYNDROME
     Dosage: 75 MG/M2 (160 MG), SUBCUTANEOUS
     Route: 058
     Dates: start: 20050823
  2. METOPROLOL (METOPROLOL) [Concomitant]
  3. PREDNISONE [Concomitant]
  4. MORPHINE [Concomitant]
  5. OXYCODONE (OXYCODONE) [Concomitant]

REACTIONS (1)
  - ACUTE MYELOID LEUKAEMIA [None]
